FAERS Safety Report 4351545-4 (Version None)
Quarter: 2004Q2

REPORT INFORMATION
  Report Type: 
  Country: None (occurrence: None)
  Receive Date: 20040429
  Receipt Date: 20040123
  Transmission Date: 20050107
  Serious: No
  Sender: FDA-Public Use
  Company Number: 2003-105015-NL

PATIENT
  Age: 21 Year
  Sex: Female
  Weight: 88.2 kg

DRUGS (1)
  1. NUVARING [Suspect]
     Indication: CONTRACEPTION
     Dosage: DF DAILY VAGINAL
     Route: 067
     Dates: start: 20030418, end: 20030501

REACTIONS (1)
  - UNINTENDED PREGNANCY [None]
